FAERS Safety Report 18942796 (Version 4)
Quarter: 2021Q2

REPORT INFORMATION
  Report Type: Other
  Country: GB (occurrence: GB)
  Receive Date: 20210225
  Receipt Date: 20210401
  Transmission Date: 20210717
  Serious: Yes (Hospitalization)
  Sender: FDA-Public Use
  Company Number: GB-ROCHE-2774435

PATIENT
  Age: 63 Year
  Sex: Male
  Weight: 80.1 kg

DRUGS (15)
  1. AMLODIPINE [Concomitant]
     Active Substance: AMLODIPINE BESYLATE
     Indication: HYPERTENSION
     Dates: start: 20120203
  2. ATEZOLIZUMAB. [Suspect]
     Active Substance: ATEZOLIZUMAB
     Indication: NON-SMALL CELL LUNG CANCER METASTATIC
     Route: 042
     Dates: start: 20210210
  3. COVID?19 VACCINE NOS. [Concomitant]
     Active Substance: COVID-19 VACCINE NOS
     Indication: PROPHYLAXIS
     Dates: start: 20210204, end: 20210204
  4. CARBOPLATIN. [Concomitant]
     Active Substance: CARBOPLATIN
     Indication: NEOPLASM MALIGNANT
  5. AFATINIB [Concomitant]
     Active Substance: AFATINIB
     Indication: NEOPLASM MALIGNANT
  6. GEFITINIB. [Concomitant]
     Active Substance: GEFITINIB
     Indication: NEOPLASM MALIGNANT
  7. BEVACIZUMAB. [Suspect]
     Active Substance: BEVACIZUMAB
     Indication: NON-SMALL CELL LUNG CANCER METASTATIC
     Route: 042
     Dates: start: 20210210
  8. VINORELBINE [Concomitant]
     Active Substance: VINORELBINE TARTRATE
     Indication: NEOPLASM MALIGNANT
  9. METFORMIN [Concomitant]
     Active Substance: METFORMIN HYDROCHLORIDE
     Indication: TYPE 2 DIABETES MELLITUS
     Dates: start: 20140324
  10. GEMCITABINE. [Concomitant]
     Active Substance: GEMCITABINE
     Indication: NEOPLASM MALIGNANT
  11. OSIMERTINIB. [Concomitant]
     Active Substance: OSIMERTINIB
     Indication: NEOPLASM MALIGNANT
  12. CARBOPLATIN. [Suspect]
     Active Substance: CARBOPLATIN
     Indication: NON-SMALL CELL LUNG CANCER METASTATIC
     Route: 065
     Dates: start: 20210210
  13. ATORVASTIN [Concomitant]
     Active Substance: ATORVASTATIN
     Indication: PROPHYLAXIS
     Dates: start: 20120625
  14. CISPLATIN. [Concomitant]
     Active Substance: CISPLATIN
     Indication: NEOPLASM MALIGNANT
  15. PACLITAXEL. [Suspect]
     Active Substance: PACLITAXEL
     Indication: NON-SMALL CELL LUNG CANCER METASTATIC
     Route: 065
     Dates: start: 20210210

REACTIONS (4)
  - Vomiting [Recovered/Resolved]
  - Fall [Unknown]
  - Hyponatraemia [Recovered/Resolved]
  - Nausea [Recovering/Resolving]

NARRATIVE: CASE EVENT DATE: 20210214
